FAERS Safety Report 23249394 (Version 1)
Quarter: 2023Q4

REPORT INFORMATION
  Report Type: Spontaneous
  Country: JP (occurrence: JP)
  Receive Date: 20231201
  Receipt Date: 20231201
  Transmission Date: 20240110
  Serious: Yes (Death, Hospitalization, Other)
  Sender: FDA-Public Use
  Company Number: JP-BAXTER-2023BAX031680

PATIENT
  Sex: Male
  Weight: 58.5 kg

DRUGS (2)
  1. EXTRANEAL [Suspect]
     Active Substance: CALCIUM CHLORIDE\ICODEXTRIN\MAGNESIUM CHLORIDE\SODIUM CHLORIDE\SODIUM LACTATE
     Indication: Renal failure
     Dosage: 500 ML, ONCE (FREQUENCY TIME NOT REPORTED)
     Route: 033
     Dates: start: 20230701, end: 20230920
  2. REGUNEAL LCA [Suspect]
     Active Substance: CALCIUM CHLORIDE\DEXTROSE MONOHYDRATE\HYDROCHLORIC ACID\MAGNESIUM CHLORIDE\SODIUM BICARBONATE\SODIUM
     Indication: Renal failure
     Dosage: 1000 ML, 4 TIMES (FREQUENCY TIME NOT REPORTED)
     Route: 033
     Dates: start: 20230610, end: 20230920

REACTIONS (4)
  - Abdominal abscess [Fatal]
  - Pseudomonas peritonitis [Unknown]
  - Peritoneal cloudy effluent [Unknown]
  - Abdominal pain [Unknown]
